FAERS Safety Report 5302083-3 (Version None)
Quarter: 2007Q2

REPORT INFORMATION
  Report Type: 
  Country: None (occurrence: None)
  Receive Date: 20070419
  Receipt Date: 20070412
  Transmission Date: 20071010
  Serious: Yes (Death, Hospitalization, Congenital Anomaly)
  Sender: FDA-Public Use
  Company Number: FR-GLAXOSMITHKLINE-B0439834B

PATIENT

DRUGS (2)
  1. LAMICTAL [Suspect]
     Indication: EPILEPSY
     Dosage: 500MG PER DAY
  2. LEDERFOLINE [Suspect]
     Indication: PROPHYLAXIS
     Dates: start: 20050101, end: 20060401

REACTIONS (10)
  - ASPIRATION [None]
  - CONGENITAL DIAPHRAGMATIC HERNIA [None]
  - DRUG EXPOSURE DURING PREGNANCY [None]
  - FALLOT'S TETRALOGY [None]
  - FOETAL GROWTH RETARDATION [None]
  - HYPOXIA [None]
  - PULMONARY HYPOPLASIA [None]
  - RENAL TUBULAR NECROSIS [None]
  - TRANSPOSITION OF THE GREAT VESSELS [None]
  - VISCERAL CONGESTION [None]
